FAERS Safety Report 21452501 (Version 3)
Quarter: 2022Q4

REPORT INFORMATION
  Report Type: Spontaneous
  Country: AT (occurrence: AT)
  Receive Date: 20221013
  Receipt Date: 20221128
  Transmission Date: 20230113
  Serious: Yes (Other)
  Sender: FDA-Public Use
  Company Number: None

PATIENT
  Age: 57 Year
  Sex: Male
  Weight: 92 kg

DRUGS (1)
  1. COSENTYX [Suspect]
     Active Substance: SECUKINUMAB
     Indication: Spondylitis
     Dosage: 300 MG, QMO (1X MONATLICH)
     Route: 065
     Dates: start: 202105

REACTIONS (1)
  - Metastatic malignant melanoma [Not Recovered/Not Resolved]

NARRATIVE: CASE EVENT DATE: 20220601
